FAERS Safety Report 8721620 (Version 2)
Quarter: 2012Q4

REPORT INFORMATION
  Report Type: Spontaneous
  Country: BR (occurrence: BR)
  Receive Date: 20120814
  Receipt Date: 20120831
  Transmission Date: 20130627
  Serious: Yes (Other)
  Sender: FDA-Public Use
  Company Number: BR-ACCORD-014380

PATIENT
  Age: 67 Year
  Sex: Female
  Weight: 59 kg

DRUGS (10)
  1. GEMCITABINE HYDROCHLORIDE [Suspect]
     Indication: MALIGNANT NEOPLASM OF OVARY
     Route: 042
     Dates: start: 20120703, end: 20120703
  2. DEXAMETHASONE [Concomitant]
     Indication: PREMEDICATION
     Route: 042
     Dates: start: 20120703, end: 20120703
  3. ONDANSETRON [Concomitant]
     Indication: PREMEDICATION
     Route: 042
     Dates: start: 20120703, end: 20120703
  4. AMITRIPTYLINE HYDROCHLORIDE [Concomitant]
     Dates: start: 20120508, end: 20120708
  5. OMEPRAZOLE [Concomitant]
     Route: 048
     Dates: start: 20120508, end: 20120708
  6. BROMOPRIDE [Concomitant]
     Route: 048
     Dates: start: 20120508, end: 20120708
  7. LEVOTHYROXINE SODIUM [Concomitant]
     Route: 048
  8. HYDROCHLOROTHIAZIDE [Concomitant]
     Route: 048
  9. CALCIUM CARBONATE [Concomitant]
     Route: 048
  10. BROMAZEPAM [Concomitant]
     Route: 048

REACTIONS (5)
  - Erythema [Recovered/Resolved]
  - Discomfort [Recovered/Resolved]
  - Off label use [Unknown]
  - Rash [None]
  - Dyspnoea [None]
